FAERS Safety Report 24227673 (Version 2)
Quarter: 2025Q1

REPORT INFORMATION
  Report Type: Spontaneous
  Country: GB (occurrence: GB)
  Receive Date: 20240820
  Receipt Date: 20250131
  Transmission Date: 20250408
  Serious: Yes (Other)
  Sender: MYLAN
  Company Number: GB-MYLANLABS-2023M1086664

PATIENT
  Age: 39 Year
  Sex: Male

DRUGS (1)
  1. CLOZARIL [Suspect]
     Active Substance: CLOZAPINE
     Indication: Product used for unknown indication
     Route: 048
     Dates: start: 20040827

REACTIONS (3)
  - Thrombocytopenia [Unknown]
  - Differential white blood cell count abnormal [Unknown]
  - Leukocytosis [Unknown]

NARRATIVE: CASE EVENT DATE: 20230815
